FAERS Safety Report 16361755 (Version 1)
Quarter: 2019Q2

REPORT INFORMATION
  Report Type: Spontaneous
  Country: US (occurrence: US)
  Receive Date: 20190419
  Receipt Date: 20190419
  Transmission Date: 20190711
  Serious: No
  Sender: FDA-Public Use
  Company Number: None

PATIENT
  Age: 72 Year
  Sex: Female

DRUGS (4)
  1. OCALIVA [Suspect]
     Active Substance: OBETICHOLIC ACID
     Indication: PRIMARY BILIARY CHOLANGITIS
     Route: 048
     Dates: start: 20190327
  2. NIRTAZIPINE [Concomitant]
  3. URSODIOL. [Concomitant]
     Active Substance: URSODIOL
  4. GENERLAC [Concomitant]
     Active Substance: LACTULOSE

REACTIONS (1)
  - Dry skin [None]
